FAERS Safety Report 5221913-7 (Version None)
Quarter: 2007Q1

REPORT INFORMATION
  Report Type: 
  Country: None (occurrence: None)
  Receive Date: 20070129
  Receipt Date: 20051214
  Transmission Date: 20070707
  Serious: No
  Sender: FDA-Public Use
  Company Number: CHPA2005US07176

PATIENT
  Sex: Female

DRUGS (2)
  1. WELLBUTRIN [Suspect]
     Dosage: 150MG PER DAY
     Route: 048
     Dates: start: 20050101
  2. AMERICAN FARE NTS, 7MG STEP 3 [Suspect]
     Dosage: 7MG SINGLE DOSE
     Route: 062
     Dates: start: 20051123, end: 20051123

REACTIONS (5)
  - CRYING [None]
  - DEPRESSED MOOD [None]
  - IRRITABILITY [None]
  - PALPITATIONS [None]
  - TREATMENT NONCOMPLIANCE [None]
